FAERS Safety Report 26160216 (Version 1)
Quarter: 2025Q4

REPORT INFORMATION
  Report Type: Spontaneous
  Country: US (occurrence: US)
  Receive Date: 20251216
  Receipt Date: 20251216
  Transmission Date: 20260117
  Serious: Yes (Other)
  Sender: DR REDDYS
  Company Number: None

PATIENT
  Age: 68 Year
  Sex: Male

DRUGS (9)
  1. METOPROLOL [Suspect]
     Active Substance: METOPROLOL
     Indication: Cardiac failure
     Route: 048
  2. TORSEMIDE [Concomitant]
     Active Substance: TORSEMIDE
     Indication: Polyuria
  3. TORSEMIDE [Concomitant]
     Active Substance: TORSEMIDE
     Indication: Hypervolaemia
     Route: 048
  4. TORSEMIDE [Concomitant]
     Active Substance: TORSEMIDE
     Dosage: ONCE-DAILY DOSING FROM DAY 2 BECAUSE OF SEVERELY VOLUME OVERLOADED
     Route: 048
  5. SPIRONOLACTONE [Concomitant]
     Active Substance: SPIRONOLACTONE
     Indication: Product used for unknown indication
  6. MILRINONE [Concomitant]
     Active Substance: MILRINONE
     Indication: Cardiac failure
     Dosage: CONTINUOUS MILRINONE INFUSION (0.375 MCG/KG/MIN).
  7. MILRINONE [Concomitant]
     Active Substance: MILRINONE
     Indication: Palliative care
  8. DIGOXIN [Concomitant]
     Active Substance: DIGOXIN
     Indication: Product used for unknown indication
     Route: 048
  9. DIGOXIN [Concomitant]
     Active Substance: DIGOXIN
     Dosage: 0.125 MG DAILY (ORALLY)
     Route: 048

REACTIONS (1)
  - Hypotension [Unknown]
